FAERS Safety Report 10402725 (Version 2)
Quarter: 2014Q3

REPORT INFORMATION
  Report Type: Spontaneous
  Country: US (occurrence: US)
  Receive Date: 20140822
  Receipt Date: 20140903
  Transmission Date: 20150326
  Serious: Yes (Hospitalization)
  Sender: FDA-Public Use
  Company Number: US-ACTELION-A-NJ2014-103794

PATIENT
  Age: 86 Year
  Sex: Female

DRUGS (8)
  1. FOLIC ACID. [Concomitant]
     Active Substance: FOLIC ACID
  2. MAGNESIUM [Concomitant]
     Active Substance: MAGNESIUM
  3. BYSTOLIC [Concomitant]
     Active Substance: NEBIVOLOL HYDROCHLORIDE
  4. ZYRTEC [Concomitant]
     Active Substance: CETIRIZINE HYDROCHLORIDE
  5. PRADAXA [Concomitant]
     Active Substance: DABIGATRAN ETEXILATE MESYLATE
  6. LASIX [Concomitant]
     Active Substance: FUROSEMIDE
  7. OPSUMIT [Suspect]
     Active Substance: MACITENTAN
     Indication: PULMONARY ARTERIAL HYPERTENSION
     Dosage: 10 MG, QD
     Route: 048
     Dates: start: 20140507
  8. BETAPACE [Concomitant]
     Active Substance: SOTALOL HYDROCHLORIDE

REACTIONS (1)
  - Bacterial infection [Recovering/Resolving]

NARRATIVE: CASE EVENT DATE: 20140620
